FAERS Safety Report 8122790-7 (Version None)
Quarter: 2012Q1

REPORT INFORMATION
  Report Type: 
  Country: None (occurrence: None)
  Receive Date: 20120208
  Receipt Date: 20120126
  Transmission Date: 20120608
  Serious: No
  Sender: FDA-Public Use
  Company Number: US-BIOGENIDEC-2012BI003275

PATIENT
  Sex: Female

DRUGS (1)
  1. AVONEX [Suspect]
     Indication: MULTIPLE SCLEROSIS
     Route: 030
     Dates: start: 20120111

REACTIONS (11)
  - CHILLS [None]
  - FEELING ABNORMAL [None]
  - MUSCULOSKELETAL DISORDER [None]
  - TREMOR [None]
  - FEELING COLD [None]
  - MOBILITY DECREASED [None]
  - GENERAL SYMPTOM [None]
  - LOSS OF CONTROL OF LEGS [None]
  - FEAR [None]
  - INJECTION SITE PAIN [None]
  - MUSCULOSKELETAL STIFFNESS [None]
